FAERS Safety Report 19750703 (Version 4)
Quarter: 2022Q2

REPORT INFORMATION
  Report Type: Spontaneous
  Country: US (occurrence: US)
  Receive Date: 20210826
  Receipt Date: 20220601
  Transmission Date: 20220721
  Serious: Yes (Hospitalization, Other)
  Sender: FDA-Public Use
  Company Number: US-BIOCODEX2-2021000530

PATIENT

DRUGS (5)
  1. DIACOMIT [Suspect]
     Active Substance: STIRIPENTOL
     Indication: Severe myoclonic epilepsy of infancy
     Dosage: 500MG THREE TIMES DAILY.
     Route: 065
     Dates: start: 20210311
  2. DIACOMIT [Suspect]
     Active Substance: STIRIPENTOL
     Dosage: 500 MG IN THE MORNING AND 1000 MG IN THE EVENING. MIX EACH PACKET IN 10ML OF WATER.
     Route: 065
     Dates: start: 20210315, end: 20220512
  3. DIACOMIT [Suspect]
     Active Substance: STIRIPENTOL
     Dosage: 1.5 PACKETS EVERY MORNING AND 2 PACKETS EVERY EVENING
     Route: 065
     Dates: start: 20210315
  4. CLOBAZAM [Concomitant]
     Active Substance: CLOBAZAM
     Indication: Severe myoclonic epilepsy of infancy
     Dosage: UNK
     Route: 065
  5. PHENOBARBITAL [Concomitant]
     Active Substance: PHENOBARBITAL
     Indication: Product used for unknown indication
     Dosage: UNK
     Route: 065

REACTIONS (9)
  - Seizure [Unknown]
  - Tooth loss [Unknown]
  - Asthenia [Unknown]
  - Headache [Unknown]
  - Gingival swelling [Unknown]
  - Swelling face [Unknown]
  - Fatigue [Unknown]
  - Drug ineffective [Unknown]
  - Product dose omission issue [Unknown]
